FAERS Safety Report 24163717 (Version 1)
Quarter: 2024Q3

REPORT INFORMATION
  Report Type: Report from Study
  Country: AU (occurrence: None)
  Receive Date: 20240801
  Receipt Date: 20240801
  Transmission Date: 20241016
  Serious: Yes (Other)
  Sender: ASTRAZENECA
  Company Number: 2024A142506

PATIENT
  Sex: Male
  Weight: 78 kg

DRUGS (5)
  1. BRILINTA [Suspect]
     Active Substance: TICAGRELOR
     Indication: Stent placement
     Route: 048
     Dates: start: 202310
  2. BRILINTA [Suspect]
     Active Substance: TICAGRELOR
     Indication: Stent placement
     Route: 048
     Dates: start: 20240619
  3. ATORVASTATIN [Concomitant]
     Active Substance: ATORVASTATIN
  4. PERINDOPRIL [Concomitant]
     Active Substance: PERINDOPRIL
  5. METOPROLOL [Concomitant]
     Active Substance: METOPROLOL

REACTIONS (5)
  - Epistaxis [Recovering/Resolving]
  - Vertigo [Unknown]
  - Dyspnoea [Unknown]
  - Nausea [Unknown]
  - Dizziness [Unknown]
